FAERS Safety Report 17526239 (Version 1)
Quarter: 2020Q1

REPORT INFORMATION
  Report Type: Other
  Country: IT (occurrence: IT)
  Receive Date: 20200310
  Receipt Date: 20200310
  Transmission Date: 20200409
  Serious: Yes (Hospitalization, Other)
  Sender: FDA-Public Use
  Company Number: IT-EMD SERONO-9150253

PATIENT
  Age: 47 Year
  Sex: Male

DRUGS (2)
  1. RANITIDINE. [Suspect]
     Active Substance: RANITIDINE
     Indication: ABDOMINAL PAIN UPPER
  2. METFORMIN [Suspect]
     Active Substance: METFORMIN HYDROCHLORIDE
     Indication: TYPE 2 DIABETES MELLITUS

REACTIONS (6)
  - Medication error [Unknown]
  - Diabetic ketoacidosis [Recovered/Resolved]
  - Vomiting [Unknown]
  - Condition aggravated [Unknown]
  - Diabetic metabolic decompensation [Unknown]
  - Gastroduodenal ulcer [Unknown]
